FAERS Safety Report 5139369-1 (Version None)
Quarter: 2006Q4

REPORT INFORMATION
  Report Type: 
  Country: None (occurrence: None)
  Receive Date: 20061024
  Receipt Date: 20061016
  Transmission Date: 20070319
  Serious: Yes (Hospitalization)
  Sender: FDA-Public Use
  Company Number: TPA2006A01179

PATIENT
  Age: 65 Year
  Sex: Female
  Weight: 38.1929 kg

DRUGS (12)
  1. PIOGLITAZONE HCL [Suspect]
     Indication: GLUCOSE TOLERANCE IMPAIRED
     Dosage: 45 MG, 1 IN 1 D, PER ORAL
     Route: 048
     Dates: start: 20040917
  2. LASIX (FUROSEMIDE) (20 MILLIGRAM) [Concomitant]
  3. RANITIDINE [Concomitant]
  4. POTASSIUM CHLORIDE [Concomitant]
  5. HYDROCODONE W/APAP (PARACETAMOL, HYDROCODONE) [Concomitant]
  6. POTASSIUM (POTASSIUM CHLORIDE) [Concomitant]
  7. FUROSEMIDE [Concomitant]
  8. IODINE (IODINE) (TABLETS) [Concomitant]
  9. DETROL LA [Concomitant]
  10. B-12 (CYANOCOBALAMIN) (INJECTION) [Concomitant]
  11. ASA EC (ACETYLSALICYLIC ACID) (TABLETS) [Concomitant]
  12. WALGREENS A-Z MVJ (ERGOCALCIFEROL, ASCORBIC ACID, FOLIC ACID, THIAMINE [Concomitant]

REACTIONS (3)
  - CONDITION AGGRAVATED [None]
  - HIP ARTHROPLASTY [None]
  - OSTEOARTHRITIS [None]
